FAERS Safety Report 7949283-1 (Version None)
Quarter: 2011Q4

REPORT INFORMATION
  Report Type: 
  Country: None (occurrence: None)
  Receive Date: 20111130
  Receipt Date: 20111122
  Transmission Date: 20120403
  Serious: Yes (Hospitalization)
  Sender: FDA-Public Use
  Company Number: US-ROCHE-1017219

PATIENT
  Age: 64 Year
  Sex: Female

DRUGS (5)
  1. LISINOPRIL [Suspect]
     Indication: HYPERTENSION
     Route: 048
  2. COPEGUS [Suspect]
     Indication: HEPATITIS C
     Route: 048
  3. PEGASYS [Suspect]
     Indication: HEPATITIS C
     Route: 058
  4. NSAI NOS [Suspect]
     Indication: PAIN IN EXTREMITY
     Route: 048
  5. TELAPREVIR [Suspect]
     Indication: HEPATITIS C
     Route: 048

REACTIONS (9)
  - BLOOD CREATININE INCREASED [None]
  - HYPERTENSION [None]
  - VOMITING [None]
  - NEPHROPATHY TOXIC [None]
  - ENCEPHALOPATHY [None]
  - AZOTAEMIA [None]
  - PAIN IN EXTREMITY [None]
  - AGITATION [None]
  - DEHYDRATION [None]
